FAERS Safety Report 17552470 (Version 1)
Quarter: 2020Q1

REPORT INFORMATION
  Report Type: Spontaneous
  Country: BR (occurrence: BR)
  Receive Date: 20200317
  Receipt Date: 20200317
  Transmission Date: 20200409
  Serious: Yes (Other)
  Sender: FDA-Public Use
  Company Number: BR-BAYER-2020-043863

PATIENT
  Age: 44 Year
  Sex: Female

DRUGS (2)
  1. UROCRAN [Concomitant]
     Indication: PROPHYLAXIS URINARY TRACT INFECTION
     Route: 048
  2. QLAIRA [Suspect]
     Active Substance: DIENOGEST\ESTRADIOL VALERATE
     Indication: CONTRACEPTION
     Dosage: 1 DF, QD
     Route: 048
     Dates: start: 2018

REACTIONS (6)
  - Drug interaction [None]
  - Urinary tract infection bacterial [Not Recovered/Not Resolved]
  - Withdrawal bleed [None]
  - Metrorrhagia [Recovered/Resolved]
  - Diarrhoea [None]
  - Withdrawal bleed [None]

NARRATIVE: CASE EVENT DATE: 202001
